FAERS Safety Report 4879621-8 (Version None)
Quarter: 2006Q1

REPORT INFORMATION
  Report Type: 
  Country: None (occurrence: None)
  Receive Date: 20060111
  Receipt Date: 20060102
  Transmission Date: 20060701
  Serious: Yes (Hospitalization, Disabling)
  Sender: FDA-Public Use
  Company Number: 2006002082

PATIENT
  Age: 85 Year
  Sex: Female

DRUGS (5)
  1. XANAX [Suspect]
     Indication: ILL-DEFINED DISORDER
     Dosage: 1.5 MG (0.5 MG, 1 D), ORAL
     Route: 048
     Dates: start: 20041215
  2. ROHYPNOL (FLUNITRAZEPAM) [Suspect]
     Indication: ILL-DEFINED DISORDER
     Dosage: 0.5 MG (1 MG, 1 D), ORAL
     Route: 048
     Dates: start: 20041215
  3. MESTINON [Suspect]
     Indication: ILL-DEFINED DISORDER
     Dosage: 60 MG (60 MG, 1 IN 1 D), ORAL
     Route: 048
     Dates: start: 20050701
  4. CYAMEMAZINE (CYAMEMAZINE) [Concomitant]
  5. PRAZEPAM [Concomitant]

REACTIONS (2)
  - FALL [None]
  - FEMORAL NECK FRACTURE [None]
